FAERS Safety Report 19264407 (Version 1)
Quarter: 2021Q2

REPORT INFORMATION
  Report Type: Spontaneous
  Country: US (occurrence: US)
  Receive Date: 20210517
  Receipt Date: 20210517
  Transmission Date: 20210717
  Serious: Yes (Hospitalization)
  Sender: FDA-Public Use
  Company Number: None

PATIENT
  Sex: Female

DRUGS (1)
  1. CAPECITABINE. [Suspect]
     Active Substance: CAPECITABINE
     Indication: OVARIAN CANCER
     Route: 048
     Dates: start: 20210503

REACTIONS (6)
  - Hypophagia [None]
  - Diarrhoea [None]
  - Dizziness [None]
  - Product odour abnormal [None]
  - Near death experience [None]
  - Vomiting [None]
